FAERS Safety Report 14539505 (Version 1)
Quarter: 2018Q1

REPORT INFORMATION
  Report Type: Spontaneous
  Country: US (occurrence: US)
  Receive Date: 20180215
  Receipt Date: 20180215
  Transmission Date: 20180509
  Serious: No
  Sender: FDA-Public Use
  Company Number: None

PATIENT
  Age: 41 Year
  Sex: Male

DRUGS (1)
  1. CARBAMAZEPINE. [Suspect]
     Active Substance: CARBAMAZEPINE
     Dosage: 200 MG 3 QAM, 4QHS; ORAL?
     Route: 048
     Dates: start: 20171201

REACTIONS (1)
  - Seizure [None]

NARRATIVE: CASE EVENT DATE: 20180212
